FAERS Safety Report 5064704-2 (Version None)
Quarter: 2006Q3

REPORT INFORMATION
  Report Type: 
  Country: None (occurrence: None)
  Receive Date: 20060728
  Receipt Date: 20060721
  Transmission Date: 20061208
  Serious: Yes (Death)
  Sender: FDA-Public Use
  Company Number: 454696

PATIENT
  Age: 51 Year
  Sex: Female

DRUGS (5)
  1. CARVEDILOL [Suspect]
     Indication: CONGESTIVE CARDIOMYOPATHY
     Route: 048
     Dates: start: 20030715, end: 20031016
  2. LASIX [Concomitant]
  3. NEUQUINON [Concomitant]
  4. DIGOSIN [Concomitant]
  5. ACARDI [Concomitant]

REACTIONS (14)
  - ANOREXIA [None]
  - CARDIAC FAILURE [None]
  - DYSPNOEA [None]
  - EJECTION FRACTION DECREASED [None]
  - HAEMODIALYSIS [None]
  - HYPERGLYCAEMIA [None]
  - HYPONATRAEMIA [None]
  - MALAISE [None]
  - NAUSEA [None]
  - ORAL INTAKE REDUCED [None]
  - PLEURAL EFFUSION [None]
  - RENAL FAILURE [None]
  - SHOCK [None]
  - VOMITING [None]
